FAERS Safety Report 10983376 (Version 1)
Quarter: 2015Q2

REPORT INFORMATION
  Report Type: Spontaneous
  Country: US (occurrence: None)
  Receive Date: 20150402
  Receipt Date: 20150402
  Transmission Date: 20150821
  Serious: Yes (Life-Threatening)
  Sender: FDA-Public Use
  Company Number: None

PATIENT
  Age: 16 Year
  Sex: Female
  Weight: 41 kg

DRUGS (1)
  1. FERUMOXYTOL [Suspect]
     Active Substance: FERUMOXYTOL
     Indication: IRON DEFICIENCY ANAEMIA
     Route: 042
     Dates: start: 20140226

REACTIONS (4)
  - Dyspnoea [None]
  - Headache [None]
  - Back pain [None]
  - Abdominal pain [None]

NARRATIVE: CASE EVENT DATE: 20140226
